FAERS Safety Report 8540464-5 (Version None)
Quarter: 2012Q3

REPORT INFORMATION
  Report Type: 
  Country: None (occurrence: None)
  Receive Date: 20120726
  Receipt Date: 20120717
  Transmission Date: 20120928
  Serious: Yes (Other)
  Sender: FDA-Public Use
  Company Number: PL-ABBOTT-12P-163-0957327-00

PATIENT
  Sex: Female

DRUGS (1)
  1. DEPAKENE [Suspect]
     Indication: EPILEPSY

REACTIONS (3)
  - EPILEPSY [None]
  - DIARRHOEA [None]
  - MEDICATION RESIDUE [None]
